FAERS Safety Report 23699128 (Version 3)
Quarter: 2024Q2

REPORT INFORMATION
  Report Type: Spontaneous
  Country: US (occurrence: US)
  Receive Date: 20240402
  Receipt Date: 20240620
  Transmission Date: 20240716
  Serious: No
  Sender: FDA-Public Use
  Company Number: US-PHARMING-PHAUS2024000257

PATIENT

DRUGS (2)
  1. RUCONEST [Suspect]
     Active Substance: CONESTAT ALFA
     Indication: Immunodeficiency common variable
     Dosage: 4200 IU, AS NEEDED
     Route: 042
     Dates: start: 202403
  2. RUCONEST [Suspect]
     Active Substance: CONESTAT ALFA
     Dosage: 4200 IU, AS NEEDED
     Route: 042
     Dates: start: 202403

REACTIONS (6)
  - Infection [Unknown]
  - Condition aggravated [Unknown]
  - Weight increased [Unknown]
  - Insurance issue [Unknown]
  - Swelling [Unknown]
  - Product use in unapproved indication [Unknown]
